FAERS Safety Report 5706722-4 (Version None)
Quarter: 2008Q2

REPORT INFORMATION
  Report Type: 
  Country: None (occurrence: None)
  Receive Date: 20080416
  Receipt Date: 20080414
  Transmission Date: 20081010
  Serious: Yes (Other)
  Sender: FDA-Public Use
  Company Number: US-BAYER-200810374NA

PATIENT
  Age: 19 Year
  Sex: Female

DRUGS (1)
  1. YAZ [Suspect]
     Indication: HAEMORRHAGE
     Route: 048
     Dates: start: 20060101, end: 20071201

REACTIONS (6)
  - CATARACT [None]
  - CONTACT LENS COMPLICATION [None]
  - DIPLOPIA [None]
  - DRY EYE [None]
  - VISUAL DISTURBANCE [None]
  - VITREOUS FLOATERS [None]
